FAERS Safety Report 10587020 (Version 1)
Quarter: 2014Q4

REPORT INFORMATION
  Report Type: Other
  Country: DE (occurrence: DE)
  Receive Date: 20141117
  Receipt Date: 20141117
  Transmission Date: 20150529
  Serious: Yes (Other)
  Sender: FDA-Public Use
  Company Number: DE-LUPIN PHARMACEUTICALS INC.-2014-01749

PATIENT
  Age: 26 Year
  Sex: Female

DRUGS (1)
  1. SERTRALINE [Suspect]
     Active Substance: SERTRALINE HYDROCHLORIDE
     Indication: DEPRESSION
     Dosage: 100MG
     Route: 048

REACTIONS (3)
  - Exposure during pregnancy [Unknown]
  - Cholelithiasis [Unknown]
  - Hepatic enzyme increased [Unknown]
